FAERS Safety Report 21330300 (Version 2)
Quarter: 2023Q2

REPORT INFORMATION
  Report Type: Spontaneous
  Country: US (occurrence: US)
  Receive Date: 20220913
  Receipt Date: 20230609
  Transmission Date: 20230722
  Serious: Yes (Hospitalization)
  Sender: FDA-Public Use
  Company Number: US-EVOKE PHARMA, INC.-2022EVO000154

PATIENT

DRUGS (1)
  1. GIMOTI [Suspect]
     Active Substance: METOCLOPRAMIDE HYDROCHLORIDE
     Indication: Diabetic gastroparesis
     Dosage: 120 MG PER DAY AS DIRECTED
     Route: 045
     Dates: start: 20220823, end: 20220825

REACTIONS (4)
  - Gait inability [Recovering/Resolving]
  - Parkinsonian gait [Recovering/Resolving]
  - Tremor [Recovering/Resolving]
  - Overdose [Unknown]

NARRATIVE: CASE EVENT DATE: 20220823
